FAERS Safety Report 9374029 (Version 1)
Quarter: 2013Q2

REPORT INFORMATION
  Report Type: Spontaneous
  Country: US (occurrence: US)
  Receive Date: 20130628
  Receipt Date: 20130628
  Transmission Date: 20140414
  Serious: Yes (Other)
  Sender: FDA-Public Use
  Company Number: US-ACCORD-018197

PATIENT
  Age: 60 Year
  Sex: Male

DRUGS (1)
  1. MITOMYCIN [Suspect]
     Indication: OESOPHAGEAL STENOSIS
     Dosage: 4 ML
     Route: 026

REACTIONS (6)
  - Tenderness [Unknown]
  - Erythema [Unknown]
  - Swelling [Unknown]
  - Discomfort [Unknown]
  - Off label use [Unknown]
  - Extravasation [Unknown]
